FAERS Safety Report 6099906-X (Version None)
Quarter: 2009Q1

REPORT INFORMATION
  Report Type: 
  Country: None (occurrence: None)
  Receive Date: 20090303
  Receipt Date: 20090224
  Transmission Date: 20090719
  Serious: Yes (Other)
  Sender: FDA-Public Use
  Company Number: FR-ASTRAZENECA-2009CG00231

PATIENT
  Age: 21895 Day
  Sex: Male
  Weight: 78 kg

DRUGS (3)
  1. NEXIUM [Suspect]
     Indication: GASTROOESOPHAGEAL REFLUX DISEASE
     Route: 048
     Dates: start: 20090114, end: 20090116
  2. SOLUPRED [Concomitant]
     Indication: SINUSITIS
     Route: 048
     Dates: start: 20090114
  3. IZILOX [Concomitant]
     Indication: SINUSITIS
     Route: 048
     Dates: start: 20090114

REACTIONS (3)
  - HYPOTENSION [None]
  - MALAISE [None]
  - VISION BLURRED [None]
